FAERS Safety Report 25303908 (Version 1)
Quarter: 2025Q2

REPORT INFORMATION
  Report Type: Report from Study
  Country: US (occurrence: US)
  Receive Date: 20250513
  Receipt Date: 20250513
  Transmission Date: 20250716
  Serious: Yes (Other)
  Sender: ALEXION PHARMACEUTICALS
  Company Number: US-AstraZeneca-CH-00865803A

PATIENT

DRUGS (1)
  1. OSIMERTINIB [Suspect]
     Active Substance: OSIMERTINIB
     Dosage: 80 MILLIGRAM, QD
     Route: 065

REACTIONS (6)
  - Blindness [Unknown]
  - Muscular weakness [Unknown]
  - Arthralgia [Unknown]
  - Headache [Unknown]
  - Blister [Recovering/Resolving]
  - Rash [Unknown]
